FAERS Safety Report 7920138-1 (Version None)
Quarter: 2011Q4

REPORT INFORMATION
  Report Type: 
  Country: None (occurrence: None)
  Receive Date: 20111117
  Receipt Date: 20111111
  Transmission Date: 20120403
  Serious: Yes (Hospitalization)
  Sender: FDA-Public Use
  Company Number: US-JNJFOC-20111105481

PATIENT
  Sex: Female
  Weight: 62.6 kg

DRUGS (2)
  1. REMICADE [Suspect]
     Route: 042
  2. REMICADE [Suspect]
     Indication: RHEUMATOID ARTHRITIS
     Route: 042

REACTIONS (11)
  - FATIGUE [None]
  - VOMITING [None]
  - HEADACHE [None]
  - NAUSEA [None]
  - TREMOR [None]
  - DYSPNOEA [None]
  - CHEST DISCOMFORT [None]
  - HYPERHIDROSIS [None]
  - INTERVERTEBRAL DISC DEGENERATION [None]
  - GINGIVAL PAIN [None]
  - ORAL DISORDER [None]
